FAERS Safety Report 16789618 (Version 1)
Quarter: 2019Q3

REPORT INFORMATION
  Report Type: Spontaneous
  Country: US (occurrence: US)
  Receive Date: 20190910
  Receipt Date: 20190910
  Transmission Date: 20191005
  Serious: No
  Sender: FDA-Public Use
  Company Number: US-MYLANLABS-2019M1079593

PATIENT
  Age: 75 Year
  Sex: Male
  Weight: 64 kg

DRUGS (3)
  1. COSAMIN [Concomitant]
  2. TERAZOSIN CAPSULES, USP [Suspect]
     Active Substance: TERAZOSIN HYDROCHLORIDE
     Indication: BENIGN PROSTATIC HYPERPLASIA
     Dosage: 1 DOSAGE FORM, QD (NIGHTLY)
     Route: 048
     Dates: end: 20190821
  3. SAW PALMETTO                       /00833501/ [Concomitant]
     Active Substance: HERBALS\SAW PALMETTO

REACTIONS (2)
  - Swelling face [Recovering/Resolving]
  - Lip swelling [Not Recovered/Not Resolved]

NARRATIVE: CASE EVENT DATE: 20190717
